FAERS Safety Report 23956898 (Version 1)
Quarter: 2024Q2

REPORT INFORMATION
  Report Type: Spontaneous
  Country: CZ (occurrence: CZ)
  Receive Date: 20240610
  Receipt Date: 20240610
  Transmission Date: 20240715
  Serious: Yes (Other)
  Sender: FDA-Public Use
  Company Number: None

PATIENT
  Age: 18 Year
  Sex: Male
  Weight: 62 kg

DRUGS (1)
  1. ESCITALOPRAM [Suspect]
     Active Substance: ESCITALOPRAM OXALATE
     Indication: Depression
     Dosage: ONCE A DAY, ESCITALOPRAM TEVA
     Route: 048
     Dates: start: 20200824, end: 20210824

REACTIONS (6)
  - Organic erectile dysfunction [Not Recovered/Not Resolved]
  - Disturbance in sexual arousal [Not Recovered/Not Resolved]
  - Libido decreased [Not Recovered/Not Resolved]
  - Sexual dysfunction [Recovering/Resolving]
  - Ejaculation disorder [Recovering/Resolving]
  - Sexual dysfunction [Recovering/Resolving]

NARRATIVE: CASE EVENT DATE: 20200824
